FAERS Safety Report 8331928-8 (Version None)
Quarter: 2012Q2

REPORT INFORMATION
  Report Type: 
  Country: None (occurrence: None)
  Receive Date: 20120502
  Receipt Date: 20120420
  Transmission Date: 20120825
  Serious: Yes (Other)
  Sender: FDA-Public Use
  Company Number: US-ELI_LILLY_AND_COMPANY-US201202006503

PATIENT
  Sex: Female

DRUGS (4)
  1. ANTIHYPERTENSIVES [Concomitant]
  2. PLAVIX [Concomitant]
  3. FORTEO [Suspect]
     Indication: OSTEOPOROSIS
     Dosage: 20 UG, QD
     Route: 065
     Dates: start: 20120207
  4. FORTEO [Suspect]
     Dosage: 20 UG, QD

REACTIONS (7)
  - MOBILITY DECREASED [None]
  - INJECTION SITE HAEMATOMA [None]
  - SKIN CANCER [None]
  - SWELLING FACE [None]
  - INJECTION SITE PAIN [None]
  - WEIGHT INCREASED [None]
  - INJECTION SITE ERYTHEMA [None]
